FAERS Safety Report 8304648-3 (Version None)
Quarter: 2012Q2

REPORT INFORMATION
  Report Type: 
  Country: None (occurrence: None)
  Receive Date: 20120423
  Receipt Date: 20120419
  Transmission Date: 20120825
  Serious: Yes (Death)
  Sender: FDA-Public Use
  Company Number: US-ROCHE-1036638

PATIENT
  Sex: Female

DRUGS (1)
  1. AVASTIN [Suspect]
     Indication: METASTATIC NEOPLASM
     Route: 042
     Dates: start: 20060724, end: 20060724

REACTIONS (3)
  - SEPSIS [None]
  - KLEBSIELLA TEST POSITIVE [None]
  - PANCREATIC CARCINOMA [None]
